FAERS Safety Report 21688626 (Version 1)
Quarter: 2022Q4

REPORT INFORMATION
  Report Type: Other
  Country: None (occurrence: PT)
  Receive Date: 20221206
  Receipt Date: 20221206
  Transmission Date: 20230113
  Serious: Yes (Death, Life-Threatening, Other)
  Sender: FDA-Public Use
  Company Number: PT-Air Products and Chemicals, Inc. -2135596

PATIENT
  Age: 16 Month
  Sex: Female

DRUGS (1)
  1. OXYGEN [Suspect]
     Active Substance: OXYGEN

REACTIONS (7)
  - Cyanosis [None]
  - Spleen congestion [None]
  - Subcutaneous emphysema [None]
  - Nausea [None]
  - Confusional state [None]
  - Air embolism [None]
  - Hypoxia [None]
